FAERS Safety Report 7938048-2 (Version None)
Quarter: 2011Q4

REPORT INFORMATION
  Report Type: 
  Country: None (occurrence: None)
  Receive Date: 20111123
  Receipt Date: 20111121
  Transmission Date: 20120403
  Serious: Yes (Hospitalization)
  Sender: FDA-Public Use
  Company Number: JP-B.I. PHARMACEUTICALS,INC./RIDGEFIELD-2011-BP-26461NB

PATIENT
  Age: 88 Year
  Sex: Female

DRUGS (14)
  1. SERMION [Concomitant]
     Route: 065
  2. TETRAMIDE [Concomitant]
     Route: 065
  3. URINORM [Concomitant]
     Route: 065
  4. FOSMICIN [Concomitant]
     Route: 065
  5. MICARDIS [Suspect]
     Indication: HYPERTENSION
     Dosage: 40 MG
     Route: 048
  6. MAGMITT [Concomitant]
     Route: 065
  7. LANSOPRAZOLE [Concomitant]
     Route: 065
  8. LASIX [Concomitant]
     Route: 065
  9. FERROUS CITRATE [Concomitant]
     Route: 065
  10. ETODOLAC [Concomitant]
     Route: 065
  11. ROCALTROL [Concomitant]
     Route: 065
  12. PHELLOBERIN [Concomitant]
     Route: 065
  13. AMLODIPINE [Concomitant]
     Route: 065
  14. OPALMON [Concomitant]
     Route: 065

REACTIONS (1)
  - HYPOGLYCAEMIA [None]
